FAERS Safety Report 5744780-1 (Version None)
Quarter: 2008Q2

REPORT INFORMATION
  Report Type: 
  Country: None (occurrence: None)
  Receive Date: 20080520
  Receipt Date: 20080513
  Transmission Date: 20081010
  Serious: Yes (Hospitalization, Other)
  Sender: FDA-Public Use
  Company Number: PH-MERCK-0805PHL00008

PATIENT
  Age: 78 Year
  Sex: Female

DRUGS (2)
  1. ETORICOXIB [Concomitant]
     Indication: BACK PAIN
     Route: 048
     Dates: start: 20030101
  2. FOSAMAX PLUS D [Suspect]
     Indication: OSTEOPOROSIS
     Route: 048
     Dates: start: 20080501, end: 20080501

REACTIONS (1)
  - TRANSIENT ISCHAEMIC ATTACK [None]
